FAERS Safety Report 10935881 (Version 1)
Quarter: 2015Q1

REPORT INFORMATION
  Report Type: Report from Study
  Country: ES (occurrence: ES)
  Receive Date: 20150320
  Receipt Date: 20150320
  Transmission Date: 20150721
  Serious: Yes (Death, Other)
  Sender: FDA-Public Use
  Company Number: ES-BAYER-2015-031599

PATIENT
  Age: 9 Day
  Weight: .73 kg

DRUGS (3)
  1. ADALAT [Suspect]
     Active Substance: NIFEDIPINE
     Route: 064
  2. BETAMETHASONE [Concomitant]
     Active Substance: BETAMETHASONE
     Route: 064
  3. BUSCOPAN COMPOSITUM [Concomitant]
     Route: 064

REACTIONS (5)
  - Cerebral infarction [Fatal]
  - Low birth weight baby [None]
  - Foetal exposure during pregnancy [None]
  - Hypoxic-ischaemic encephalopathy [Fatal]
  - Premature baby [None]
